FAERS Safety Report 8314014-2 (Version None)
Quarter: 2012Q2

REPORT INFORMATION
  Report Type: 
  Country: None (occurrence: None)
  Receive Date: 20120426
  Receipt Date: 20110808
  Transmission Date: 20120825
  Serious: Yes (Other)
  Sender: FDA-Public Use
  Company Number: US-TEVA-US023278

PATIENT
  Sex: Male
  Weight: 86 kg

DRUGS (12)
  1. SINGULAIR [Concomitant]
     Indication: SEASONAL ALLERGY
     Dosage: 10 MILLIGRAM;
     Route: 048
     Dates: start: 20040101
  2. PROVENTIL [Concomitant]
     Indication: ASTHMA
     Dosage: 2 PUFFS PRN
     Route: 048
     Dates: start: 20040101
  3. IGG REPLACEMENT [Concomitant]
     Indication: HYPOGLOBULINAEMIA
     Dosage: EVERY 3 WEEKS
     Route: 030
     Dates: start: 20071201, end: 20080324
  4. IGG REPLACEMENT [Concomitant]
     Dosage: EVERY 3 WEEKS
     Route: 042
     Dates: start: 20080324
  5. LORATADINE [Concomitant]
     Indication: SEASONAL ALLERGY
     Dosage: 10 MILLIGRAM;
     Route: 048
     Dates: start: 20040101
  6. PREDNISONE TAB [Concomitant]
     Indication: INFECTION
     Dosage: QD WITH A 5 DAY TAPER, 2-3 TIMES A YEAR
     Route: 048
     Dates: start: 20050101, end: 20080101
  7. ALBUTEROL [Concomitant]
     Indication: ASTHMA
     Dosage: Q4HR PRN
     Route: 048
     Dates: start: 20040101
  8. PROVIGIL [Suspect]
     Indication: NARCOLEPSY
     Dosage: 200 MILLIGRAM;
     Route: 048
     Dates: start: 20040901
  9. SUPER B COMPLEX [Concomitant]
     Indication: SUPPLEMENTATION THERAPY
     Dosage: 1 TABLET QD
     Route: 048
     Dates: start: 20050501
  10. OMEPRAZOLE [Concomitant]
     Indication: GASTROOESOPHAGEAL REFLUX DISEASE
     Dosage: 20 MILLIGRAM;
     Route: 048
     Dates: start: 20040101
  11. MAGNESIUM [Concomitant]
     Indication: SUPPLEMENTATION THERAPY
     Dosage: 250 MILLIGRAM;
     Route: 048
     Dates: start: 20080101
  12. MENS HEALTH FORMULA [Concomitant]
     Indication: SUPPLEMENTATION THERAPY
     Route: 048
     Dates: start: 20050501

REACTIONS (9)
  - HYPOAESTHESIA [None]
  - PAIN IN EXTREMITY [None]
  - MIGRAINE [None]
  - DYSPNOEA [None]
  - URINARY TRACT INFECTION [None]
  - BLOOD URINE PRESENT [None]
  - CHEST PAIN [None]
  - NAUSEA [None]
  - DRUG SCREEN FALSE POSITIVE [None]
